FAERS Safety Report 5830694-5 (Version None)
Quarter: 2008Q3

REPORT INFORMATION
  Report Type: 
  Country: None (occurrence: None)
  Receive Date: 20080801
  Receipt Date: 20071011
  Transmission Date: 20090109
  Serious: No
  Sender: FDA-Public Use
  Company Number: US-BRISTOL-MYERS SQUIBB COMPANY-13938808

PATIENT
  Age: 72 Year
  Sex: Female
  Weight: 68 kg

DRUGS (2)
  1. WARFARIN SODIUM [Suspect]
     Indication: HEART RATE IRREGULAR
     Dates: start: 20071001
  2. AMIODARONE [Concomitant]

REACTIONS (1)
  - RASH [None]
